FAERS Safety Report 8849297 (Version 5)
Quarter: 2013Q2

REPORT INFORMATION
  Report Type: Report from Study
  Country: CA (occurrence: CA)
  Receive Date: 20121019
  Receipt Date: 20130408
  Transmission Date: 20140414
  Serious: Yes (Death, Other)
  Sender: FDA-Public Use
  Company Number: PHHY2012CA093272

PATIENT
  Age: 59 Year
  Sex: Female

DRUGS (6)
  1. CLOZARIL [Suspect]
     Indication: SCHIZOPHRENIA, PARANOID TYPE
     Dosage: 200 MG, TID
     Route: 048
     Dates: start: 20050531
  2. KLACID [Concomitant]
  3. EFEXOR XR [Concomitant]
  4. SEROQUEL [Concomitant]
  5. VALPROIC ACID [Concomitant]
     Dosage: 875 MG, HS
  6. LORAZEPAM [Concomitant]
     Dosage: 1 MG, AM

REACTIONS (9)
  - Breast cancer [Fatal]
  - Neoplasm [Fatal]
  - Bone cancer [Fatal]
  - Lung neoplasm malignant [Fatal]
  - Lymphoedema [Unknown]
  - Haematocrit decreased [Unknown]
  - Haemoglobin decreased [Unknown]
  - Grief reaction [Unknown]
  - Anxiety [Unknown]
